FAERS Safety Report 4716373-6 (Version None)
Quarter: 2005Q3

REPORT INFORMATION
  Report Type: 
  Country: None (occurrence: None)
  Receive Date: 20050713
  Receipt Date: 20050628
  Transmission Date: 20060218
  Serious: Yes (Death)
  Sender: FDA-Public Use
  Company Number: 2005-BP-10922RO

PATIENT
  Age: 3 Year

DRUGS (1)
  1. LIDOCAINE VISCOUS [Suspect]
     Dosage: ACCIDENTAL INGESTION (SEE TEXT), PO
     Route: 048

REACTIONS (1)
  - ACCIDENTAL DRUG INTAKE BY CHILD [None]
